FAERS Safety Report 25386122 (Version 1)
Quarter: 2025Q2

REPORT INFORMATION
  Report Type: Spontaneous
  Country: BE (occurrence: BE)
  Receive Date: 20250602
  Receipt Date: 20250602
  Transmission Date: 20250717
  Serious: Yes (Hospitalization, Other)
  Sender: MERCK SHARP & DOHME LLC
  Company Number: None

PATIENT
  Age: 35 Year
  Sex: Female
  Weight: 58 kg

DRUGS (31)
  1. PEMBROLIZUMAB [Suspect]
     Active Substance: PEMBROLIZUMAB
     Indication: Cervix carcinoma
     Dosage: DOSE DESCRIPTION : 1Q3W?DAILY DOSE : 9.4 MILLIGRAM?REGIMEN DOSE : 200  MILLIGRAM
     Dates: start: 20221223
  2. PEMBROLIZUMAB [Suspect]
     Active Substance: PEMBROLIZUMAB
     Indication: Cervix carcinoma
     Dosage: DOSE DESCRIPTION : 1Q3W?DAILY DOSE : 9.4 MILLIGRAM?REGIMEN DOSE : 200  MILLIGRAM
     Dates: start: 20230209
  3. CARBOPLATIN [Suspect]
     Active Substance: CARBOPLATIN
     Indication: Cervix carcinoma
     Dosage: DOSE DESCRIPTION : DOSE: 5AUC, 1Q3W
     Dates: start: 20221223, end: 20230113
  4. BEVACIZUMAB [Suspect]
     Active Substance: BEVACIZUMAB
     Indication: Cervix carcinoma
     Dosage: DOSE DESCRIPTION : 1Q3W?DAILY DOSE : 0.705 MILLIGRAM/KILOGRAM?REGIMEN DOSE : 15  MILLIGRAM/KILOGRAM
     Dates: start: 20221223
  5. BEVACIZUMAB [Suspect]
     Active Substance: BEVACIZUMAB
     Indication: Cervix carcinoma
     Dosage: DOSE DESCRIPTION : 1Q3W?DAILY DOSE : 0.705 MILLIGRAM/KILOGRAM?REGIMEN DOSE : 15  MILLIGRAM/KILOGRAM
     Dates: start: 20230209
  6. TISOTUMAB VEDOTIN [Suspect]
     Active Substance: TISOTUMAB VEDOTIN
     Indication: Cervix carcinoma
     Dosage: DOSE DESCRIPTION : 1Q3W?DAILY DOSE : 0.094 MILLIGRAM/KILOGRAM?REGIMEN DOSE : 4  MILLIGRAM/KILOGRAM
     Dates: start: 20221223, end: 20230113
  7. TISOTUMAB VEDOTIN [Suspect]
     Active Substance: TISOTUMAB VEDOTIN
     Indication: Cervix carcinoma
     Dosage: DOSE DESCRIPTION : 1Q3W?DAILY DOSE : 0.061 MILLIGRAM/KILOGRAM?REGIMEN DOSE : 1.3  MILLIGRAM/KILOGRAM
     Dates: start: 20230209
  8. DEXPANTHENOL [Concomitant]
     Active Substance: DEXPANTHENOL
     Dates: start: 202209
  9. POTASSIUM CHLORIDE [Concomitant]
     Active Substance: POTASSIUM CHLORIDE
     Dates: start: 20230109, end: 20230123
  10. ESTRADIOL [Concomitant]
     Active Substance: ESTRADIOL
     Dates: start: 202208
  11. SYNGEL [Concomitant]
     Dates: start: 20230103
  12. SOLU-MEDROL [Concomitant]
     Active Substance: METHYLPREDNISOLONE SODIUM SUCCINATE
     Dates: start: 20230120, end: 20230122
  13. TRAMADOL HYDROCHLORIDE [Concomitant]
     Active Substance: TRAMADOL HYDROCHLORIDE
     Dates: start: 20230109, end: 20230109
  14. PLASMALYTE 56 IN 5% DEXTROSE [Concomitant]
     Dates: start: 20230119, end: 20230123
  15. PLATELETS [Concomitant]
     Active Substance: HUMAN PLATELET, ALLOGENIC
     Dates: start: 20230128, end: 20230128
  16. ULTRA K [Concomitant]
     Dates: start: 20230123
  17. MORPHINE SULFATE [Concomitant]
     Active Substance: MORPHINE SULFATE
     Dates: start: 20220930
  18. ONDANSETRON [Concomitant]
     Active Substance: ONDANSETRON
     Dates: start: 20230107, end: 20230120
  19. LYRICA [Concomitant]
     Active Substance: PREGABALIN
     Dates: start: 20221212
  20. MICONAZOLE NITRATE [Concomitant]
     Active Substance: MICONAZOLE NITRATE
  21. LEVOFLOXACIN [Concomitant]
     Active Substance: LEVOFLOXACIN
     Dates: start: 20230120, end: 20230124
  22. LORMETAZEPAM [Concomitant]
     Active Substance: LORMETAZEPAM
     Dates: start: 202209
  23. FENTANYL [Concomitant]
     Active Substance: FENTANYL
     Dates: start: 20221225
  24. ALIZAPRIDE HYDROCHLORIDE [Concomitant]
     Active Substance: ALIZAPRIDE HYDROCHLORIDE
     Dates: start: 20221202
  25. ACETAMINOPHEN [Concomitant]
     Active Substance: ACETAMINOPHEN
     Dates: start: 20230102, end: 20230111
  26. HUMAN RED BLOOD CELL [Concomitant]
     Active Substance: HUMAN RED BLOOD CELL
     Dates: start: 20230128, end: 20230128
  27. ACTOSOLV [Concomitant]
     Dates: start: 20230104, end: 20230104
  28. TRAMADOL HYDROCHLORIDE [Concomitant]
     Active Substance: TRAMADOL HYDROCHLORIDE
     Dates: start: 20230108, end: 20230109
  29. MORPHINE [Concomitant]
     Active Substance: MORPHINE
     Dates: start: 20230110, end: 20230111
  30. DAFALGAN [Concomitant]
     Active Substance: ACETAMINOPHEN
     Dates: start: 202209
  31. POLYETHYLENE GLYCOL 3350\POTASSIUM CHLORIDE\SODIUM BICARBONATE\SODIUM [Concomitant]
     Active Substance: POLYETHYLENE GLYCOL 3350\POTASSIUM CHLORIDE\SODIUM BICARBONATE\SODIUM CHLORIDE
     Dates: start: 202212

REACTIONS (1)
  - Febrile neutropenia [Recovered/Resolved]

NARRATIVE: CASE EVENT DATE: 20230127
